FAERS Safety Report 9474853 (Version 2)
Quarter: 2013Q3

REPORT INFORMATION
  Report Type: Report from Study
  Country: CA (occurrence: CA)
  Receive Date: 20130823
  Receipt Date: 20130828
  Transmission Date: 20140515
  Serious: Yes (Hospitalization, Other)
  Sender: FDA-Public Use
  Company Number: CA-ABBOTT-13P-028-1133957-00

PATIENT
  Age: 73 Year
  Sex: Male
  Weight: 98.06 kg

DRUGS (2)
  1. LUPRON DEPOT [Suspect]
     Indication: PROSTATE CANCER
     Route: 030
     Dates: start: 20090409
  2. BICALUTAMIDE [Concomitant]
     Indication: PROSTATE CANCER
     Dosage: TID, PRN
     Route: 048

REACTIONS (7)
  - Muscular weakness [Recovering/Resolving]
  - Fatigue [Unknown]
  - Malaise [Unknown]
  - Dizziness [Recovering/Resolving]
  - Cerebrovascular accident [Recovered/Resolved]
  - Dizziness [Not Recovered/Not Resolved]
  - Confusional state [Unknown]
